FAERS Safety Report 9681756 (Version 3)
Quarter: 2013Q4

REPORT INFORMATION
  Report Type: Spontaneous
  Country: LT (occurrence: LT)
  Receive Date: 20131111
  Receipt Date: 20131204
  Transmission Date: 20140711
  Serious: Yes (Life-Threatening, Other)
  Sender: FDA-Public Use
  Company Number: LT-GLAXOSMITHKLINE-B0941282A

PATIENT
  Age: 5 Year
  Sex: Male

DRUGS (1)
  1. SERETIDE [Suspect]
     Indication: ASTHMA
     Dosage: 50UG TWICE PER DAY
     Route: 055
     Dates: start: 20131018, end: 20131019

REACTIONS (5)
  - Bronchospasm [Recovered/Resolved]
  - Urticaria [Recovered/Resolved]
  - Laryngospasm [Recovered/Resolved]
  - Rash [Recovered/Resolved]
  - Asphyxia [Recovered/Resolved]
